FAERS Safety Report 26109421 (Version 3)
Quarter: 2025Q4

REPORT INFORMATION
  Report Type: Spontaneous
  Country: EU (occurrence: EU)
  Receive Date: 20251201
  Receipt Date: 20251229
  Transmission Date: 20260117
  Serious: Yes (Hospitalization, Other)
  Sender: MYLAN
  Company Number: EU-GSK-FR2025EME142478

PATIENT
  Age: 40 Year
  Sex: Female

DRUGS (1)
  1. PAROXETINE [Suspect]
     Active Substance: PAROXETINE
     Indication: Depression
     Dosage: 20 MILLIGRAM
     Dates: start: 20220112, end: 20220117

REACTIONS (24)
  - Spinal cord injury [Unknown]
  - Thoracic vertebral fracture [Unknown]
  - Paraplegia [Unknown]
  - Shock haemorrhagic [Unknown]
  - Abdominal injury [Unknown]
  - Large intestine perforation [Unknown]
  - Pelvic fracture [Unknown]
  - Tibia fracture [Unknown]
  - Joint dislocation [Unknown]
  - Wrist fracture [Unknown]
  - Foot fracture [Unknown]
  - Rib fracture [Unknown]
  - Sternal fracture [Unknown]
  - Suicide attempt [Unknown]
  - Decubitus ulcer [Unknown]
  - Infection [Not Recovered/Not Resolved]
  - Anal incontinence [Unknown]
  - Post-traumatic stress disorder [Unknown]
  - Fatigue [Unknown]
  - Impaired healing [Unknown]
  - Back pain [Unknown]
  - Mobility decreased [Unknown]
  - Activities of daily living decreased [Unknown]
  - Urinary incontinence [Unknown]

NARRATIVE: CASE EVENT DATE: 20220117
